FAERS Safety Report 16157540 (Version 5)
Quarter: 2019Q3

REPORT INFORMATION
  Report Type: Spontaneous
  Country: US (occurrence: US)
  Receive Date: 20190404
  Receipt Date: 20190830
  Transmission Date: 20191004
  Serious: No
  Sender: FDA-Public Use
  Company Number: US-PFIZER INC-2019147413

PATIENT
  Age: 70 Year
  Sex: Female
  Weight: 55.78 kg

DRUGS (3)
  1. FULVESTRANT. [Concomitant]
     Active Substance: FULVESTRANT
     Indication: BREAST CANCER METASTATIC
     Dosage: 500 MG, CYCLIC (EVERY 28 DAYS)
     Route: 030
     Dates: start: 20180724
  2. IBRANCE [Suspect]
     Active Substance: PALBOCICLIB
     Indication: BREAST CANCER METASTATIC
     Dosage: 100 MG, CYCLIC (ONCE DAILY DAYS 1-18 EVERY 28-DAY CYCLE)
     Dates: start: 20180810
  3. METHADONE [METHADONE HYDROCHLORIDE] [Concomitant]
     Indication: METASTASES TO BONE

REACTIONS (1)
  - Influenza like illness [Recovered/Resolved]

NARRATIVE: CASE EVENT DATE: 20190307
